FAERS Safety Report 7944190 (Version 2)
Quarter: 2020Q3

REPORT INFORMATION
  Report Type: Other
  Country: US (occurrence: US)
  Receive Date: 20110513
  Receipt Date: 20200916
  Transmission Date: 20201103
  Serious: Yes (Death, Hospitalization, Other)
  Sender: FDA-Public Use
  Company Number: US-ROCHE-776042

PATIENT
  Age: 10 Year
  Sex: Female

DRUGS (2)
  1. CEFTRIAXONE. [Suspect]
     Active Substance: CEFTRIAXONE
     Indication: BACTERAEMIA
     Route: 065
  2. CEFTRIAXONE. [Suspect]
     Active Substance: CEFTRIAXONE
     Indication: PYREXIA

REACTIONS (8)
  - Drug specific antibody present [Unknown]
  - Pleural effusion [Unknown]
  - Haemolysis [Fatal]
  - Urinary incontinence [Unknown]
  - Multiple organ dysfunction syndrome [Fatal]
  - Lung infiltration [Unknown]
  - Anal incontinence [Unknown]
  - Disseminated intravascular coagulation [Unknown]
